FAERS Safety Report 9582539 (Version 1)
Quarter: 2013Q4

REPORT INFORMATION
  Report Type: Spontaneous
  Country: US (occurrence: US)
  Receive Date: 20131002
  Receipt Date: 20131002
  Transmission Date: 20140711
  Serious: No
  Sender: FDA-Public Use
  Company Number: US-AMGEN-USASP2013041304

PATIENT
  Age: 64 Year
  Sex: Female
  Weight: 81.63 kg

DRUGS (17)
  1. ENBREL [Suspect]
     Indication: PRODUCT USED FOR UNKNOWN INDICATION
     Dosage: 50 MG, QWK
     Route: 058
     Dates: start: 2009
  2. GLIPIZIDE ER [Concomitant]
     Dosage: 10 MG, UNK
  3. COZAAR [Concomitant]
     Dosage: 25 MG, UNK
  4. IRON PLUS                          /02335101/ [Concomitant]
     Dosage: 100, UNK
  5. PROTONIX [Concomitant]
     Dosage: 20 MG, UNK
  6. SERTRALINE [Concomitant]
     Dosage: 25 MG, UNK
  7. JANUVIA [Concomitant]
     Dosage: 25 MG, UNK
  8. MAGNESIUM CALCIUM [Concomitant]
     Dosage: UNK
  9. HIPREX [Concomitant]
     Dosage: 1 G, UNK
  10. METOPROLOL TARTRATE [Concomitant]
     Dosage: 100 MG, UNK
  11. TRAZODONE [Concomitant]
     Dosage: 50 MG, UNK
  12. METFORMIN [Concomitant]
     Dosage: 500 MG, UNK
  13. FOLIC ACID [Concomitant]
     Dosage: 1 MG, UNK
  14. PREDNISONE [Concomitant]
     Dosage: 1 MG, UNK
  15. CYCLOBENZAPRINE [Concomitant]
     Dosage: 10 MG, UNK
  16. METHOTREXATE [Concomitant]
     Dosage: 25 MG/ML, UNK
  17. HYDROCODONE/HOMATROP [Concomitant]
     Dosage: UNK

REACTIONS (4)
  - Injection site injury [Unknown]
  - Injection site pain [Unknown]
  - Injection site induration [Unknown]
  - Injection site swelling [Unknown]
